FAERS Safety Report 7758515-4 (Version None)
Quarter: 2011Q3

REPORT INFORMATION
  Report Type: 
  Country: None (occurrence: None)
  Receive Date: 20110914
  Receipt Date: 20110905
  Transmission Date: 20111222
  Serious: Yes (Hospitalization)
  Sender: FDA-Public Use
  Company Number: 2011SP041925

PATIENT
  Age: 70 Year
  Sex: Female

DRUGS (7)
  1. ZYPREXA [Concomitant]
  2. INTERFERON BETA NOS [Suspect]
     Indication: HEPATITIS C
     Dosage: 6 MIU;QD;IV 6 MIGJU;TIW;IV
     Route: 042
     Dates: start: 20101001, end: 20110624
  3. INTERFERON BETA NOS [Suspect]
     Indication: HEPATITIS C
     Dosage: 6 MIU;QD;IV 6 MIGJU;TIW;IV
     Route: 042
     Dates: start: 20100915, end: 20101001
  4. REBETOL [Suspect]
     Indication: HEPATITIS C
     Dosage: 200 MG;TID;PO
     Route: 048
     Dates: start: 20100915, end: 20110627
  5. OMEPRAZOLE [Concomitant]
  6. VEGETAMIN-B (CHLORPROMAZINE_PROMET-HAZINE COMBINED DRUG) [Concomitant]
  7. NITRAZEPAM [Concomitant]

REACTIONS (6)
  - DYSLALIA [None]
  - EYELID PTOSIS [None]
  - DIZZINESS [None]
  - CEREBRAL INFARCTION [None]
  - TRANSIENT ISCHAEMIC ATTACK [None]
  - DYSARTHRIA [None]
